FAERS Safety Report 13507658 (Version 1)
Quarter: 2017Q2

REPORT INFORMATION
  Report Type: Spontaneous
  Country: US (occurrence: US)
  Receive Date: 20170503
  Receipt Date: 20170503
  Transmission Date: 20170830
  Serious: Yes (Disabling)
  Sender: FDA-Public Use
  Company Number: None

PATIENT
  Age: 63 Year
  Sex: Female
  Weight: 81.45 kg

DRUGS (4)
  1. TUMERIC [Concomitant]
     Active Substance: HERBALS\TURMERIC
  2. ATORVASTATIN [Suspect]
     Active Substance: ATORVASTATIN
     Indication: CORONARY ARTERY OCCLUSION
     Dosage: ?          QUANTITY:1 TABLET(S);?AT BEDTUNE IRAK
     Route: 048
     Dates: start: 20170316, end: 20170418
  3. MULTI VITAMIN [Concomitant]
     Active Substance: VITAMINS
  4. ATENOLOL. [Concomitant]
     Active Substance: ATENOLOL

REACTIONS (9)
  - Confusional state [None]
  - Hallucination [None]
  - Muscle spasms [None]
  - Depression [None]
  - Asthenia [None]
  - Chromaturia [None]
  - Myalgia [None]
  - Decreased appetite [None]
  - Amnesia [None]

NARRATIVE: CASE EVENT DATE: 20170320
